FAERS Safety Report 8533912-8 (Version None)
Quarter: 2012Q2

REPORT INFORMATION
  Report Type: 
  Country: None (occurrence: None)
  Receive Date: 20120628
  Receipt Date: 20120622
  Transmission Date: 20120825
  Serious: Yes (Hospitalization)
  Sender: FDA-Public Use
  Company Number: 2012032705

PATIENT
  Sex: Male
  Weight: 65.7716 kg

DRUGS (4)
  1. DIPHENHYDRAMINE (DIPHENHYRDRAMINE) [Concomitant]
  2. EPINEPHRINE (PINEPHRINE) [Concomitant]
  3. LIDOCAINE/PRILOCAINE (EMLA /00675501/) [Concomitant]
  4. HIZENTRA [Suspect]
     Indication: IMMUNODEFICIENCY COMMON VARIABLE
     Dosage: 16 G 1X/WEEK, 4 GM ON 2-6 SITES OVER 1-2 HOURS SUBCUTANEOUS
     Route: 058

REACTIONS (1)
  - BLOOD COUNT ABNORMAL [None]
